FAERS Safety Report 8296814-0 (Version None)
Quarter: 2012Q2

REPORT INFORMATION
  Report Type: 
  Country: None (occurrence: None)
  Receive Date: 20120419
  Receipt Date: 20120323
  Transmission Date: 20120825
  Serious: No
  Sender: FDA-Public Use
  Company Number: US-ASTRAZENECA-2011SE52957

PATIENT
  Age: 48 Year
  Sex: Female
  Weight: 90.7 kg

DRUGS (6)
  1. NEXIUM [Suspect]
     Indication: GASTROOESOPHAGEAL REFLUX DISEASE
     Route: 048
  2. TEGRETOL [Concomitant]
     Indication: BIPOLAR DISORDER
  3. SEROQUEL [Suspect]
     Route: 048
  4. LITHIUM CARBONATE [Concomitant]
     Indication: BIPOLAR DISORDER
  5. SEROQUEL [Suspect]
     Indication: BIPOLAR DISORDER
     Route: 048
  6. PRILOSEC OTC [Concomitant]
     Indication: GASTROOESOPHAGEAL REFLUX DISEASE

REACTIONS (5)
  - OROPHARYNGEAL BLISTERING [None]
  - DIZZINESS [None]
  - GASTROOESOPHAGEAL REFLUX DISEASE [None]
  - WEIGHT INCREASED [None]
  - SENSATION OF FOREIGN BODY [None]
